FAERS Safety Report 24462001 (Version 1)
Quarter: 2024Q4

REPORT INFORMATION
  Report Type: Spontaneous
  Country: NL (occurrence: NL)
  Receive Date: 20241018
  Receipt Date: 20241018
  Transmission Date: 20250114
  Serious: Yes (Death)
  Sender: NOVITIUM PHARMA
  Company Number: NL-NOVITIUMPHARMA-2024NLNVP02228

PATIENT
  Age: 36 Year
  Sex: Male

DRUGS (7)
  1. DEXAMETHASONE [Suspect]
     Active Substance: DEXAMETHASONE
     Indication: Burkitt^s lymphoma stage IV
  2. RITUXIMAB [Concomitant]
     Active Substance: RITUXIMAB
     Indication: Burkitt^s lymphoma stage IV
  3. CISPLATIN [Concomitant]
     Active Substance: CISPLATIN
     Indication: Burkitt^s lymphoma stage IV
  4. CYTARABINE [Concomitant]
     Active Substance: CYTARABINE
     Indication: Burkitt^s lymphoma stage IV
  5. INOTUZUMAB OZOGAMICIN [Concomitant]
     Active Substance: INOTUZUMAB OZOGAMICIN
     Indication: Burkitt^s lymphoma stage IV
  6. IDELALISIB [Concomitant]
     Active Substance: IDELALISIB
     Indication: Burkitt^s lymphoma stage IV
  7. GEMCITABINE [Concomitant]
     Active Substance: GEMCITABINE
     Indication: Burkitt^s lymphoma stage IV

REACTIONS (1)
  - Drug ineffective [Fatal]
